APPROVED DRUG PRODUCT: KETOPROFEN
Active Ingredient: KETOPROFEN
Strength: 50MG
Dosage Form/Route: CAPSULE;ORAL
Application: A074024 | Product #001
Applicant: RISING PHARMA HOLDINGS INC
Approved: Dec 29, 1995 | RLD: No | RS: No | Type: DISCN